FAERS Safety Report 8015959-3 (Version None)
Quarter: 2011Q4

REPORT INFORMATION
  Report Type: 
  Country: None (occurrence: None)
  Receive Date: 20111230
  Receipt Date: 20111219
  Transmission Date: 20120403
  Serious: Yes (Other)
  Sender: FDA-Public Use
  Company Number: CA-JNJFOC-20111210351

PATIENT
  Sex: Male
  Weight: 95.26 kg

DRUGS (14)
  1. REMICADE [Suspect]
     Route: 042
     Dates: start: 20110101
  2. GLUCONORM NOS [Concomitant]
     Route: 065
  3. PERINDOPRIL ERBUMINE [Concomitant]
     Route: 065
  4. OMEPRAZOLE [Concomitant]
     Route: 065
  5. AVODART [Concomitant]
     Route: 065
  6. LASIX [Concomitant]
     Route: 065
  7. ACTONEL [Concomitant]
     Route: 065
  8. ATACAND [Concomitant]
     Route: 065
  9. ATORVASTATIN [Concomitant]
     Route: 065
  10. METFORMIN HCL [Concomitant]
     Route: 065
  11. ZYLOPRIM [Concomitant]
     Route: 065
  12. CARBOCAL D [Concomitant]
     Route: 065
  13. REMICADE [Suspect]
     Indication: PSORIASIS
     Route: 042
     Dates: start: 20111019
  14. ACETYLSALICYLIC ACID SRT [Concomitant]
     Route: 065

REACTIONS (4)
  - FATIGUE [None]
  - DIABETES MELLITUS INADEQUATE CONTROL [None]
  - MYALGIA [None]
  - PYREXIA [None]
